FAERS Safety Report 20505132 (Version 1)
Quarter: 2022Q1

REPORT INFORMATION
  Report Type: Spontaneous
  Country: US (occurrence: US)
  Receive Date: 20220223
  Receipt Date: 20220223
  Transmission Date: 20220423
  Serious: Yes (Death, Life-Threatening, Hospitalization, Other)
  Sender: FDA-Public Use
  Company Number: US-AMGEN-USASP2022029595

PATIENT
  Age: 30 Year
  Sex: Male

DRUGS (3)
  1. INFLIXIMAB [Suspect]
     Active Substance: INFLIXIMAB
     Indication: Pneumonitis
     Dosage: UNK
     Route: 065
  2. IPILIMUMAB [Concomitant]
     Active Substance: IPILIMUMAB
     Indication: Myeloid leukaemia
  3. DDAVP [Concomitant]
     Active Substance: DESMOPRESSIN ACETATE

REACTIONS (6)
  - Drug-induced liver injury [Recovering/Resolving]
  - Respiratory disorder [Fatal]
  - Hypophysitis [Unknown]
  - Pneumocystis jirovecii pneumonia [Unknown]
  - Autoimmune hepatitis [Recovering/Resolving]
  - Off label use [Unknown]
